FAERS Safety Report 4468379-2 (Version None)
Quarter: 2004Q4

REPORT INFORMATION
  Report Type: 
  Country: None (occurrence: None)
  Receive Date: 20041007
  Receipt Date: 20040615
  Transmission Date: 20050328
  Serious: Yes (Death)
  Sender: FDA-Public Use
  Company Number: BE-GLAXOSMITHKLINE-B0336373A

PATIENT
  Sex: Female

DRUGS (5)
  1. LAMOTRIGINE [Suspect]
     Indication: EPILEPSY
     Dates: start: 20030812
  2. SYMBICORT [Concomitant]
  3. SINGULAIR [Concomitant]
  4. FOLIC ACID [Concomitant]
  5. TOBACCO [Concomitant]

REACTIONS (7)
  - CARDIAC FAILURE [None]
  - DEATH [None]
  - DRUG EXPOSURE DURING PREGNANCY [None]
  - LUNG DISORDER [None]
  - PLACENTAL TRANSFUSION SYNDROME [None]
  - TRICUSPID VALVE INCOMPETENCE [None]
  - VENTRICULAR HYPOPLASIA [None]
